FAERS Safety Report 17848675 (Version 2)
Quarter: 2020Q3

REPORT INFORMATION
  Report Type: Spontaneous
  Country: JP (occurrence: JP)
  Receive Date: 20200602
  Receipt Date: 20200703
  Transmission Date: 20201103
  Serious: Yes (Hospitalization)
  Sender: FDA-Public Use
  Company Number: JP-SA-2020SA135636

PATIENT

DRUGS (1)
  1. CLOPIDOGREL TABLETS 75MG [SANIK] [Suspect]
     Active Substance: CLOPIDOGREL BISULFATE
     Indication: PRODUCT USED FOR UNKNOWN INDICATION
     Dosage: UNK
     Route: 048

REACTIONS (3)
  - Neurofibroma [Recovered/Resolved]
  - Mass [Recovered/Resolved]
  - Haematoma [Recovered/Resolved]
